FAERS Safety Report 20589611 (Version 8)
Quarter: 2024Q3

REPORT INFORMATION
  Report Type: Report from Study
  Country: DE (occurrence: DE)
  Receive Date: 20220314
  Receipt Date: 20240717
  Transmission Date: 20241017
  Serious: No
  Sender: ROCHE
  Company Number: DE-ROCHE-2833665

PATIENT
  Age: 33 Year
  Sex: Female

DRUGS (6)
  1. OCREVUS [Suspect]
     Active Substance: OCRELIZUMAB
     Indication: Secondary progressive multiple sclerosis
     Route: 042
     Dates: start: 20190301, end: 20211111
  2. COMIRNATY (TOZINAMERAN) [Suspect]
     Active Substance: TOZINAMERAN
     Indication: Product used for unknown indication
     Route: 065
  3. PROPIVERINE [Concomitant]
     Active Substance: PROPIVERINE
  4. VITAMIN D3 [Concomitant]
     Active Substance: CHOLECALCIFEROL
  5. TIMO COMOD [Concomitant]
  6. TROSPIUM CHLORIDE [Concomitant]
     Active Substance: TROSPIUM CHLORIDE

REACTIONS (7)
  - Off label use [Unknown]
  - Fatigue [Recovered/Resolved]
  - Depression [Recovering/Resolving]
  - SARS-CoV-2 antibody test negative [Recovered/Resolved]
  - Glaucoma [Unknown]
  - COVID-19 [Recovered/Resolved]
  - Cystitis [Recovered/Resolved]

NARRATIVE: CASE EVENT DATE: 20190301
